FAERS Safety Report 12866404 (Version 1)
Quarter: 2016Q4

REPORT INFORMATION
  Report Type: Spontaneous
  Country: US (occurrence: US)
  Receive Date: 20161020
  Receipt Date: 20161020
  Transmission Date: 20170207
  Serious: No
  Sender: FDA-Public Use
  Company Number: US-TEVA-705745USA

PATIENT
  Sex: Male

DRUGS (1)
  1. COPAXONE [Suspect]
     Active Substance: GLATIRAMER ACETATE
     Dosage: FORM STRENGTH: UNKNOWN

REACTIONS (8)
  - Paraesthesia [Unknown]
  - Headache [Unknown]
  - Pain [Unknown]
  - Hyperhidrosis [Unknown]
  - Muscle tightness [Unknown]
  - Formication [Unknown]
  - Sleep disorder [Unknown]
  - Drug intolerance [Unknown]
